FAERS Safety Report 5914899-0 (Version None)
Quarter: 2008Q4

REPORT INFORMATION
  Report Type: 
  Country: None (occurrence: None)
  Receive Date: 20081010
  Receipt Date: 20081007
  Transmission Date: 20090506
  Serious: Yes (Death)
  Sender: FDA-Public Use
  Company Number: PHEH2008US07723

PATIENT
  Sex: Female

DRUGS (3)
  1. RECLAST [Suspect]
     Dosage: UNK
     Dates: start: 20080202
  2. RISEDRONATE SODIUM [Concomitant]
     Dosage: 25 MG, QD
  3. CELECOXIB [Concomitant]

REACTIONS (1)
  - DEATH [None]
